FAERS Safety Report 7030778-2 (Version None)
Quarter: 2010Q4

REPORT INFORMATION
  Report Type: 
  Country: None (occurrence: None)
  Receive Date: 20101006
  Receipt Date: 20100923
  Transmission Date: 20110411
  Serious: Yes (Hospitalization, Other)
  Sender: FDA-Public Use
  Company Number: PHHO2010GR13675

PATIENT
  Sex: Female
  Weight: 61 kg

DRUGS (2)
  1. FTY 720 FTY+ [Suspect]
     Indication: MULTIPLE SCLEROSIS
     Dosage: UNK
     Route: 048
  2. FTY 720 FTY+ [Suspect]
     Dosage: 0.5MG
     Route: 048
     Dates: start: 20080813, end: 20100827

REACTIONS (5)
  - BREAST CALCIFICATIONS [None]
  - BREAST CANCER [None]
  - BREAST CANCER STAGE III [None]
  - BREAST LUMP REMOVAL [None]
  - BREAST MASS [None]
